FAERS Safety Report 21825198 (Version 6)
Quarter: 2024Q2

REPORT INFORMATION
  Report Type: Report from Study
  Country: US (occurrence: US)
  Receive Date: 20230105
  Receipt Date: 20240529
  Transmission Date: 20240717
  Serious: Yes (Other)
  Sender: FDA-Public Use
  Company Number: US-JAZZ-2022-US-016665

PATIENT
  Age: 35 Year
  Sex: Female

DRUGS (21)
  1. XYWAV [Suspect]
     Active Substance: CALCIUM OXYBATE\MAGNESIUM OXYBATE\POTASSIUM OXYBATE\SODIUM OXYBATE
     Indication: Narcolepsy
     Dosage: 2.25 MILLIGRAM, BID AT NGIHT
     Dates: start: 20220513
  2. XYWAV [Suspect]
     Active Substance: CALCIUM OXYBATE\MAGNESIUM OXYBATE\POTASSIUM OXYBATE\SODIUM OXYBATE
     Indication: Cataplexy
     Dosage: 4.5 GRAM, BID
     Route: 048
  3. XYWAV [Suspect]
     Active Substance: CALCIUM OXYBATE\MAGNESIUM OXYBATE\POTASSIUM OXYBATE\SODIUM OXYBATE
     Indication: Somnolence
  4. WEGOVY [Suspect]
     Active Substance: SEMAGLUTIDE
     Indication: Peristalsis visible
     Dosage: 2.4MG WEEKLY
  5. MODAFINIL [Suspect]
     Active Substance: MODAFINIL
     Indication: Product used for unknown indication
     Dosage: UNK
  6. PROVIGIL [Concomitant]
     Active Substance: MODAFINIL
     Indication: Product used for unknown indication
     Dosage: UNK
     Dates: start: 20220425
  7. SLYND [Concomitant]
     Active Substance: DROSPIRENONE
     Indication: Product used for unknown indication
     Dosage: UNK
     Dates: start: 20201215
  8. GABAPENTIN [Concomitant]
     Active Substance: GABAPENTIN
     Indication: Product used for unknown indication
     Dosage: UNK
     Dates: start: 20210819
  9. NOVOLOG [Concomitant]
     Active Substance: INSULIN ASPART
     Indication: Product used for unknown indication
     Dosage: 100 UNIT/ML FLEXPEN
     Dates: start: 20200526
  10. TOUJEO [Concomitant]
     Active Substance: INSULIN GLARGINE
     Indication: Product used for unknown indication
     Dosage: 300 UNIT/ML
     Dates: start: 20200526
  11. MONTELUKAST SODIUM [Concomitant]
     Active Substance: MONTELUKAST SODIUM
     Indication: Product used for unknown indication
     Dosage: UNK
     Dates: start: 20211102
  12. VITAMINS NOS [Concomitant]
     Active Substance: VITAMINS
     Indication: Product used for unknown indication
     Dosage: UNK
     Dates: start: 20190906
  13. ALBUTEROL SULFATE [Concomitant]
     Active Substance: ALBUTEROL SULFATE
     Indication: Product used for unknown indication
     Dosage: UNK
     Dates: start: 20210819
  14. PHENAZOPYRIDINE [Concomitant]
     Active Substance: PHENAZOPYRIDINE
     Indication: Product used for unknown indication
     Dosage: UNK
     Dates: start: 20220516
  15. CLARITHROMYCIN [Concomitant]
     Active Substance: CLARITHROMYCIN
     Indication: Product used for unknown indication
     Dosage: UNK
     Dates: start: 20220707
  16. CYANOCOBALAMIN [Concomitant]
     Active Substance: CYANOCOBALAMIN
     Indication: Product used for unknown indication
     Dosage: UNK
     Dates: start: 20240101
  17. MOUNJARO [Concomitant]
     Active Substance: TIRZEPATIDE
     Indication: Product used for unknown indication
     Dosage: UNK
     Dates: start: 20240111
  18. ROSUVASTATIN CALCIUM [Concomitant]
     Active Substance: ROSUVASTATIN CALCIUM
     Indication: Product used for unknown indication
     Dosage: UNK
     Dates: start: 20240520
  19. VITAMIN C [Concomitant]
     Active Substance: ASCORBIC ACID
     Indication: Product used for unknown indication
     Dosage: UNK
     Dates: start: 20240520
  20. D-MANNOSE [Concomitant]
     Indication: Product used for unknown indication
     Dosage: UNK
     Dates: start: 20240520
  21. CRANBERRY [Concomitant]
     Active Substance: CRANBERRY
     Indication: Product used for unknown indication
     Dosage: UNK
     Dates: start: 20240520

REACTIONS (20)
  - Vitreous detachment [Unknown]
  - Weight decreased [Recovering/Resolving]
  - Stress [Unknown]
  - Gastrointestinal hypomotility [Unknown]
  - Urinary tract infection [Unknown]
  - Hunger [Unknown]
  - Calcium deficiency [Unknown]
  - Drug hypersensitivity [Unknown]
  - Fungal infection [Unknown]
  - Apathy [Recovered/Resolved]
  - Diarrhoea [Unknown]
  - Hyperhidrosis [Unknown]
  - Drug interaction [Unknown]
  - Alopecia [Unknown]
  - Burning sensation [Unknown]
  - Iron deficiency anaemia [Recovered/Resolved]
  - Pain in extremity [Unknown]
  - Pre-existing condition improved [Recovered/Resolved]
  - Product dose omission issue [Recovering/Resolving]
  - Drug effect less than expected [Unknown]

NARRATIVE: CASE EVENT DATE: 20220501
